FAERS Safety Report 24864647 (Version 1)
Quarter: 2025Q1

REPORT INFORMATION
  Report Type: Spontaneous
  Country: TR (occurrence: TR)
  Receive Date: 20250120
  Receipt Date: 20250120
  Transmission Date: 20250409
  Serious: Yes (Death, Life-Threatening, Hospitalization)
  Sender: ACCORD
  Company Number: TR-MLMSERVICE-20250106-PI332352-00082-1

PATIENT
  Age: 59 Year
  Sex: Female

DRUGS (2)
  1. CARBOPLATIN [Suspect]
     Active Substance: CARBOPLATIN
     Indication: Cholangiocarcinoma
  2. GEMCITABINE [Suspect]
     Active Substance: GEMCITABINE
     Indication: Cholangiocarcinoma

REACTIONS (1)
  - Thrombotic thrombocytopenic purpura [Fatal]
